FAERS Safety Report 18215801 (Version 1)
Quarter: 2020Q3

REPORT INFORMATION
  Report Type: Spontaneous
  Country: GB (occurrence: GB)
  Receive Date: 20200831
  Receipt Date: 20200831
  Transmission Date: 20201103
  Serious: Yes (Other)
  Sender: FDA-Public Use
  Company Number: GB-SAMSUNG BIOEPIS-SB-2020-27223

PATIENT
  Age: 37 Year
  Sex: Female
  Weight: 119 kg

DRUGS (1)
  1. INFLIXIMAB [Suspect]
     Active Substance: INFLIXIMAB
     Indication: PRODUCT USED FOR UNKNOWN INDICATION
     Dosage: UNKNOWN
     Route: 051
     Dates: start: 20200514

REACTIONS (2)
  - Social avoidant behaviour [Recovered/Resolved]
  - Indifference [Recovered/Resolved]

NARRATIVE: CASE EVENT DATE: 20200514
